FAERS Safety Report 10183889 (Version 2)
Quarter: 2014Q2

REPORT INFORMATION
  Report Type: Report from Study
  Country: DE (occurrence: DE)
  Receive Date: 20140520
  Receipt Date: 20140520
  Transmission Date: 20141212
  Serious: Yes (Hospitalization, Other)
  Sender: FDA-Public Use
  Company Number: DE-INCYTE CORPORATION-2013IN002490

PATIENT
  Age: 73 Year
  Sex: Male
  Weight: 87 kg

DRUGS (3)
  1. INCB018424 [Suspect]
     Indication: MYELOFIBROSIS
     Dosage: 15 MG, BID
     Route: 048
     Dates: start: 20130614, end: 20130929
  2. INCB018424 [Suspect]
     Dosage: 15 MG, QD
     Route: 048
     Dates: start: 20131205, end: 20140115
  3. INCB018424 [Suspect]
     Dosage: 5 MG, QD
     Route: 048
     Dates: start: 20140211, end: 20140225

REACTIONS (5)
  - Pneumonia [Recovered/Resolved]
  - C-reactive protein increased [Recovered/Resolved]
  - Pulmonary embolism [Recovered/Resolved]
  - Dyspnoea [Unknown]
  - Painful respiration [Recovered/Resolved]
